FAERS Safety Report 8413285-1 (Version None)
Quarter: 2012Q2

REPORT INFORMATION
  Report Type: 
  Country: None (occurrence: None)
  Receive Date: 20120605
  Receipt Date: 20120601
  Transmission Date: 20120825
  Serious: Yes (Other)
  Sender: FDA-Public Use
  Company Number: PHEH2012US011192

PATIENT
  Sex: Female

DRUGS (3)
  1. DIOVAN [Suspect]
     Indication: BLOOD PRESSURE
     Dosage: 160 MG, QD
  2. XANAX [Concomitant]
     Indication: ANXIETY
     Dosage: 0.1 MG, PRN
     Route: 048
  3. LUMIGAN [Concomitant]
     Indication: GLAUCOMA
     Dosage: 1 DRP (0.01%), QD

REACTIONS (1)
  - BREAST CANCER [None]
